FAERS Safety Report 8336805-4 (Version None)
Quarter: 2012Q2

REPORT INFORMATION
  Report Type: 
  Country: None (occurrence: None)
  Receive Date: 20120504
  Receipt Date: 20120427
  Transmission Date: 20120825
  Serious: Yes (Other)
  Sender: FDA-Public Use
  Company Number: FR-JNJFOC-20120413965

PATIENT
  Sex: Female
  Weight: 44 kg

DRUGS (1)
  1. TOPIRAMATE [Suspect]
     Indication: PARTIAL SEIZURES
     Route: 048
     Dates: start: 20090423, end: 20110201

REACTIONS (2)
  - ALOPECIA [None]
  - ALOPECIA AREATA [None]
